FAERS Safety Report 9385889 (Version 6)
Quarter: 2015Q1

REPORT INFORMATION
  Report Type: Spontaneous
  Country: US (occurrence: US)
  Receive Date: 20130705
  Receipt Date: 20150223
  Transmission Date: 20150721
  Serious: Yes (Life-Threatening, Hospitalization, Disabling, Other)
  Sender: FDA-Public Use
  Company Number: US-MERCK-1306USA014598

PATIENT
  Sex: Male
  Weight: 92.52 kg

DRUGS (2)
  1. JANUVIA [Suspect]
     Active Substance: SITAGLIPTIN PHOSPHATE
     Indication: TYPE 2 DIABETES MELLITUS
     Dosage: 100 MG, QD
     Route: 048
     Dates: start: 20091105, end: 20130116
  2. METFORMIN [Concomitant]
     Active Substance: METFORMIN HYDROCHLORIDE
     Indication: TYPE 2 DIABETES MELLITUS
     Dosage: 500 MG, BID
     Route: 048
     Dates: start: 2008

REACTIONS (35)
  - Metastases to bone [Unknown]
  - Prostatomegaly [Unknown]
  - Arteriosclerosis coronary artery [Unknown]
  - Pancreatic carcinoma metastatic [Not Recovered/Not Resolved]
  - Metastases to liver [Unknown]
  - Heart valve replacement [Unknown]
  - Atelectasis [Unknown]
  - Osteoarthritis [Unknown]
  - Calcinosis [Unknown]
  - Metastasis [Unknown]
  - Vascular calcification [Unknown]
  - Spinal osteoarthritis [Unknown]
  - Metastases to lymph nodes [Unknown]
  - Spinal fusion surgery [Unknown]
  - Hiatus hernia [Unknown]
  - Diverticulum intestinal [Unknown]
  - Radiotherapy to liver [Not Recovered/Not Resolved]
  - Radiotherapy [Unknown]
  - Pancreatic calcification [Unknown]
  - Cardiac operation [Unknown]
  - Skin cancer [Unknown]
  - Radiotherapy to liver [Unknown]
  - Radiotherapy [Unknown]
  - Radiotherapy [Unknown]
  - Aortic calcification [Unknown]
  - Bladder disorder [Unknown]
  - Soft tissue disorder [Unknown]
  - Arthritis [Unknown]
  - Gastric ulcer [Unknown]
  - Spinal osteoarthritis [Unknown]
  - Heart valve replacement [Unknown]
  - Calculus bladder [Unknown]
  - Intestinal obstruction [Unknown]
  - Pulmonary fibrosis [Unknown]
  - Aortic calcification [Unknown]

NARRATIVE: CASE EVENT DATE: 201004
